FAERS Safety Report 6377293-7 (Version None)
Quarter: 2009Q3

REPORT INFORMATION
  Report Type: 
  Country: None (occurrence: None)
  Receive Date: 20090923
  Receipt Date: 20090923
  Transmission Date: 20100115
  Serious: No
  Sender: FDA-Public Use
  Company Number: None

PATIENT
  Age: 55 Year
  Sex: Female
  Weight: 56.7 kg

DRUGS (9)
  1. HEPARIN [Suspect]
     Indication: DEEP VEIN THROMBOSIS
     Dosage: 1050 UNITS/HR CI
     Dates: start: 20090715, end: 20090718
  2. HEPARIN [Suspect]
     Indication: PROPHYLAXIS
     Dosage: 1050 UNITS/HR CI
     Dates: start: 20090715, end: 20090718
  3. HYDROCORTISONE [Concomitant]
  4. INSULIN [Concomitant]
  5. LEVETIRACETAM [Concomitant]
  6. MEROPENEM [Concomitant]
  7. METOPROLOL SUCCINATE [Concomitant]
  8. OXCARBAZEPINE [Concomitant]
  9. RANITIDINE [Concomitant]

REACTIONS (3)
  - ACTIVATED PARTIAL THROMBOPLASTIN TIME PROLONGED [None]
  - HAEMATOMA [None]
  - HAEMOGLOBIN DECREASED [None]
